FAERS Safety Report 5358591-2 (Version None)
Quarter: 2007Q2

REPORT INFORMATION
  Report Type: 
  Country: None (occurrence: None)
  Receive Date: 20070613
  Receipt Date: 20070613
  Transmission Date: 20071010
  Serious: Yes (Other)
  Sender: FDA-Public Use
  Company Number: None

PATIENT
  Age: 62 Year
  Sex: Male
  Weight: 82.1011 kg

DRUGS (1)
  1. LYRICA [Suspect]
     Indication: MIGRAINE
     Dosage: 50MG 2X DAILY PO
     Route: 048
     Dates: start: 20070529, end: 20070611

REACTIONS (1)
  - DYSPNOEA [None]
